FAERS Safety Report 7729250-3 (Version None)
Quarter: 2011Q3

REPORT INFORMATION
  Report Type: 
  Country: None (occurrence: None)
  Receive Date: 20110906
  Receipt Date: 20110831
  Transmission Date: 20111222
  Serious: Yes (Death, Life-Threatening, Hospitalization)
  Sender: FDA-Public Use
  Company Number: FR-CELGENEUS-056-C5013-11010100

PATIENT
  Sex: Female
  Weight: 51 kg

DRUGS (11)
  1. LENALIDOMIDE [Suspect]
     Dosage: 25 MILLIGRAM
     Route: 048
     Dates: start: 20101217, end: 20101231
  2. DEXAMETHASONE [Suspect]
     Indication: MULTIPLE MYELOMA
     Dosage: 20 MILLIGRAM
     Route: 065
     Dates: start: 20090729
  3. VALACYCLOVIR HYDROCHLORIDE [Concomitant]
     Dosage: 50
     Route: 065
     Dates: start: 20110101
  4. DEXAMETHASONE [Suspect]
     Dosage: 20 MILLIGRAM
     Route: 065
     Dates: start: 20101217, end: 20101231
  5. OMEPRAZOLE [Concomitant]
     Dosage: 20 MILLIGRAM
     Route: 065
     Dates: start: 20110101
  6. ATACAND [Concomitant]
     Dosage: 4 MILLIGRAM
     Route: 048
  7. FENTANYL-100 [Concomitant]
     Route: 062
  8. LENALIDOMIDE [Suspect]
     Indication: MULTIPLE MYELOMA
     Dosage: 25 MILLIGRAM
     Route: 048
     Dates: start: 20090729
  9. PHENOXYMETHYL PENICILLIN [Concomitant]
     Dosage: 1 MILLION UNITS
     Route: 065
     Dates: start: 20110101
  10. PRAVASTATIN SODIUM [Concomitant]
     Dosage: .5 DOSAGE FORMS
     Route: 048
  11. ARIXTRA [Concomitant]
     Indication: THROMBOSIS PROPHYLAXIS
     Dosage: 2.5 MILLIGRAM
     Route: 058
     Dates: start: 20090729, end: 20101231

REACTIONS (2)
  - HAEMOPTYSIS [None]
  - LUNG ADENOCARCINOMA STAGE IV [None]
